FAERS Safety Report 13901500 (Version 1)
Quarter: 2017Q3

REPORT INFORMATION
  Report Type: Spontaneous
  Country: US (occurrence: US)
  Receive Date: 20170824
  Receipt Date: 20170824
  Transmission Date: 20171127
  Serious: No
  Sender: FDA-Public Use
  Company Number: US-GILEAD-2017-0289567

PATIENT
  Age: 59 Year
  Sex: Female

DRUGS (4)
  1. SOVALDI [Suspect]
     Active Substance: SOFOSBUVIR
     Indication: CHRONIC HEPATITIS C
     Dosage: 400 MG, QD
     Route: 065
  2. RIBAVIRIN. [Concomitant]
     Active Substance: RIBAVIRIN
  3. IBUPROFEN. [Concomitant]
     Active Substance: IBUPROFEN
  4. PEG INTERFERON ALFA 2A [Concomitant]
     Active Substance: PEGINTERFERON ALFA-2A

REACTIONS (3)
  - Abdominal distension [Unknown]
  - Neutrophil count decreased [Unknown]
  - White blood cell count decreased [Unknown]
